FAERS Safety Report 7688639-1 (Version None)
Quarter: 2011Q3

REPORT INFORMATION
  Report Type: 
  Country: None (occurrence: None)
  Receive Date: 20110817
  Receipt Date: 20110810
  Transmission Date: 20111222
  Serious: Yes (Congenital Anomaly)
  Sender: FDA-Public Use
  Company Number: DE-TEVA-295700GER

PATIENT
  Age: 0 Year
  Sex: Male
  Weight: 2.64 kg

DRUGS (6)
  1. ALBUTEROL [Suspect]
     Route: 064
     Dates: start: 20091117, end: 20100808
  2. ALVESCO [Suspect]
     Dosage: 320 MICROGRAM;
     Route: 064
     Dates: start: 20091117, end: 20100104
  3. JUNIK AUTOHALER 100UG [Suspect]
     Dosage: 400 MICROGRAM;
     Route: 064
     Dates: start: 20100105, end: 20100808
  4. BERODUAL [Suspect]
     Route: 064
  5. AMOXICILLIN [Concomitant]
     Dosage: 2000 MILLIGRAM;
     Route: 064
     Dates: start: 20100126, end: 20100215
  6. FEMIBION [Concomitant]
     Dosage: .4 MILLIGRAM;
     Route: 064
     Dates: start: 20091216, end: 20100808

REACTIONS (2)
  - PULMONARY SEQUESTRATION [None]
  - POLYDACTYLY [None]
